FAERS Safety Report 5312162-2 (Version None)
Quarter: 2007Q2

REPORT INFORMATION
  Report Type: 
  Country: None (occurrence: None)
  Receive Date: 20070430
  Receipt Date: 20060928
  Transmission Date: 20071010
  Serious: No
  Sender: FDA-Public Use
  Company Number: 2006UW18866

PATIENT
  Age: 61 Year
  Sex: Female
  Weight: 56.2 kg

DRUGS (4)
  1. NEXIUM [Suspect]
     Route: 048
     Dates: start: 20010101
  2. ZYRTEC [Concomitant]
  3. NASONEX [Concomitant]
  4. ATIVAN [Concomitant]

REACTIONS (19)
  - ACNE [None]
  - ANXIETY [None]
  - ARTHRITIS [None]
  - BACK PAIN [None]
  - CHEST PAIN [None]
  - DEPRESSION [None]
  - EAR PAIN [None]
  - FIBROMYALGIA [None]
  - GLOSSODYNIA [None]
  - HICCUPS [None]
  - HOT FLUSH [None]
  - PANIC ATTACK [None]
  - RHINITIS [None]
  - SINUSITIS [None]
  - TINNITUS [None]
  - TONGUE OEDEMA [None]
  - TREMOR [None]
  - VERTIGO [None]
  - VISION BLURRED [None]
